FAERS Safety Report 5775628-7 (Version None)
Quarter: 2008Q2

REPORT INFORMATION
  Report Type: 
  Country: None (occurrence: None)
  Receive Date: 20080617
  Receipt Date: 20080605
  Transmission Date: 20081010
  Serious: Yes (Hospitalization)
  Sender: FDA-Public Use
  Company Number: DE-PFIZER INC-2006021014

PATIENT
  Sex: Male
  Weight: 82 kg

DRUGS (3)
  1. SU-011,248 [Suspect]
     Indication: METASTATIC RENAL CELL CARCINOMA
     Route: 048
     Dates: start: 20051230, end: 20060123
  2. TOREM [Concomitant]
     Route: 048
  3. TRAMADOL HCL [Concomitant]
     Route: 048

REACTIONS (1)
  - PLEURAL EFFUSION [None]
